FAERS Safety Report 8011023-8 (Version None)
Quarter: 2011Q4

REPORT INFORMATION
  Report Type: 
  Country: None (occurrence: None)
  Receive Date: 20111228
  Receipt Date: 20111216
  Transmission Date: 20120403
  Serious: Yes (Other)
  Sender: FDA-Public Use
  Company Number: US-ELI_LILLY_AND_COMPANY-US201112006035

PATIENT
  Age: 39 Year
  Sex: Male

DRUGS (13)
  1. BACTRIM [Concomitant]
  2. EPIVIR [Concomitant]
  3. COREG [Concomitant]
  4. SEROQUEL [Concomitant]
  5. INTELENCE [Concomitant]
  6. ZESTRIL                                 /USA/ [Concomitant]
  7. LYRICA [Concomitant]
  8. XANAX                                   /USA/ [Concomitant]
  9. CYMBALTA [Suspect]
     Indication: NEUROPATHY PERIPHERAL
     Dosage: 30 MG, QD
  10. VIREAD                             /01490002/ [Concomitant]
  11. LEVAQUIN [Concomitant]
  12. MEROPENEM [Concomitant]
  13. PHENYTOIN [Concomitant]

REACTIONS (1)
  - BLOOD CREATININE INCREASED [None]
